FAERS Safety Report 6706946-3 (Version None)
Quarter: 2010Q2

REPORT INFORMATION
  Report Type: 
  Country: None (occurrence: None)
  Receive Date: 20100430
  Receipt Date: 20100430
  Transmission Date: 20101027
  Serious: Yes (Other)
  Sender: FDA-Public Use
  Company Number: None

PATIENT
  Age: 28 Year
  Sex: Male
  Weight: 129.2752 kg

DRUGS (1)
  1. WELLBUTRIN XL [Suspect]
     Indication: WEIGHT CONTROL
     Dosage: 150 MG 1 X PER DAY PO
     Route: 048
     Dates: start: 20100125, end: 20100228

REACTIONS (3)
  - DEAFNESS [None]
  - OFF LABEL USE [None]
  - TINNITUS [None]
